FAERS Safety Report 6250994-7 (Version None)
Quarter: 2009Q2

REPORT INFORMATION
  Report Type: 
  Country: None (occurrence: None)
  Receive Date: 20090630
  Receipt Date: 20081126
  Transmission Date: 20091009
  Serious: No
  Sender: FDA-Public Use
  Company Number: US-ABBOTT-08P-163-0490177-00

PATIENT
  Sex: Male

DRUGS (13)
  1. ZEMPLAR [Suspect]
     Indication: HYPERPARATHYROIDISM
     Dates: start: 20071101, end: 20080201
  2. ZEMPLAR [Suspect]
     Dates: start: 20080201
  3. ZEMPLAR [Suspect]
  4. ZEMPLAR [Suspect]
  5. MULTIVITES [Concomitant]
     Indication: DRUG USE FOR UNKNOWN INDICATION
  6. FUROSEMIDE INTENSOL [Concomitant]
     Indication: DRUG USE FOR UNKNOWN INDICATION
  7. LOSARTAN POTASSIUM [Concomitant]
     Indication: DRUG USE FOR UNKNOWN INDICATION
  8. QUINAPRIL HYDROCHLORIDE [Concomitant]
     Indication: DRUG USE FOR UNKNOWN INDICATION
  9. CADUET [Concomitant]
     Indication: DRUG USE FOR UNKNOWN INDICATION
  10. EZETIMIBE [Concomitant]
     Indication: DRUG USE FOR UNKNOWN INDICATION
  11. FENOFIBRATE [Concomitant]
     Indication: DRUG USE FOR UNKNOWN INDICATION
  12. CARVEDILOL [Concomitant]
     Indication: DRUG USE FOR UNKNOWN INDICATION
  13. ASPIRIN [Concomitant]
     Indication: DRUG USE FOR UNKNOWN INDICATION

REACTIONS (5)
  - BLOOD PARATHYROID HORMONE INCREASED [None]
  - CHEST DISCOMFORT [None]
  - DYSGEUSIA [None]
  - FLUSHING [None]
  - RASH ERYTHEMATOUS [None]
